FAERS Safety Report 6152594-6 (Version None)
Quarter: 2009Q2

REPORT INFORMATION
  Report Type: 
  Country: None (occurrence: None)
  Receive Date: 20090413
  Receipt Date: 20090331
  Transmission Date: 20091009
  Serious: Yes (Life-Threatening, Hospitalization, Other)
  Sender: FDA-Public Use
  Company Number: US-ELI_LILLY_AND_COMPANY-US200902000655

PATIENT
  Sex: Female
  Weight: 74.83 kg

DRUGS (5)
  1. CYMBALTA [Suspect]
     Indication: MAJOR DEPRESSION
     Dosage: 60 MG, DAILY (1/D)
     Route: 048
     Dates: start: 20090101, end: 20090206
  2. SUBOXONE [Concomitant]
     Indication: DRUG DEPENDENCE
     Dosage: 8 MG, UNK
     Dates: start: 20090122, end: 20090124
  3. OTHER HYPNOTICS AND SEDATIVES [Concomitant]
  4. TOPROL-XL [Concomitant]
     Indication: HYPERTENSION
  5. LIBRIUM [Concomitant]
     Dosage: 25 MG, 2/D
     Route: 048

REACTIONS (2)
  - ANAPHYLACTIC REACTION [None]
  - STEVENS-JOHNSON SYNDROME [None]
